FAERS Safety Report 14030400 (Version 1)
Quarter: 2017Q4

REPORT INFORMATION
  Report Type: Spontaneous
  Country: US (occurrence: US)
  Receive Date: 20171002
  Receipt Date: 20171002
  Transmission Date: 20180321
  Serious: Yes (Hospitalization, Other)
  Sender: FDA-Public Use
  Company Number: US-ELI_LILLY_AND_COMPANY-US201709011282

PATIENT
  Age: 65 Year
  Sex: Female

DRUGS (3)
  1. HUMALOG MIX75/25 [Suspect]
     Active Substance: INSULIN LISPRO
     Indication: TYPE 1 DIABETES MELLITUS
     Dosage: UNK UNK, UNKNOWN
     Route: 058
  2. TOUJEO [Concomitant]
     Active Substance: INSULIN GLARGINE
  3. HUMALOG MIX75/25 [Suspect]
     Active Substance: INSULIN LISPRO
     Dosage: UNK, PRN
     Route: 058
     Dates: end: 201707

REACTIONS (6)
  - Blood glucose increased [Recovered/Resolved]
  - Cataract [Not Recovered/Not Resolved]
  - Brain neoplasm [Unknown]
  - Blood glucose decreased [Recovered/Resolved]
  - Brain neoplasm [Unknown]
  - Neoplasm malignant [Recovered/Resolved]

NARRATIVE: CASE EVENT DATE: 201606
